FAERS Safety Report 21385218 (Version 1)
Quarter: 2022Q3

REPORT INFORMATION
  Report Type: Spontaneous
  Country: US (occurrence: US)
  Receive Date: 20220928
  Receipt Date: 20220928
  Transmission Date: 20221026
  Serious: Yes (Hospitalization, Other)
  Sender: FDA-Public Use
  Company Number: US-SANOFI-01290360

PATIENT
  Age: 53 Year
  Sex: Female

DRUGS (1)
  1. DUPIXENT [Suspect]
     Active Substance: DUPILUMAB
     Indication: Asthma
     Dosage: 300 MG QOW
     Dates: start: 20190319

REACTIONS (5)
  - Pancreatitis [Unknown]
  - Malaise [Unknown]
  - Abdominal distension [Unknown]
  - Abdominal tenderness [Unknown]
  - Food intolerance [Unknown]

NARRATIVE: CASE EVENT DATE: 20220101
